FAERS Safety Report 23736503 (Version 1)
Quarter: 2024Q2

REPORT INFORMATION
  Report Type: Spontaneous
  Country: US (occurrence: US)
  Receive Date: 20240412
  Receipt Date: 20240412
  Transmission Date: 20240715
  Serious: No
  Sender: FDA-Public Use
  Company Number: US-ASTELLAS-2024US008315

PATIENT
  Age: 64 Year
  Sex: Male

DRUGS (1)
  1. PROGRAF [Suspect]
     Active Substance: TACROLIMUS
     Indication: Product used for unknown indication
     Dosage: 1MG EVERY EVENING, 1.5MG EVERY MORNING, TWICE DAILY (ADMINISTERED VIA G-TUBE)
     Route: 065

REACTIONS (2)
  - Wrong technique in product usage process [Unknown]
  - Off label use [Unknown]
